FAERS Safety Report 6436178-8 (Version None)
Quarter: 2009Q4

REPORT INFORMATION
  Report Type: 
  Country: None (occurrence: None)
  Receive Date: 20091111
  Receipt Date: 20091101
  Transmission Date: 20100525
  Serious: Yes (Other)
  Sender: FDA-Public Use
  Company Number: US-ROCHE-660073

PATIENT
  Sex: Male

DRUGS (3)
  1. PEGASYS [Suspect]
     Indication: HEPATITIS C
     Dosage: FORM: PRE-FILLED SYRINGE
     Route: 065
     Dates: start: 20090817
  2. RIBAVIRIN [Suspect]
     Indication: HEPATITIS C
     Dosage: DIVIDED DOSES
     Route: 048
     Dates: start: 20090817
  3. LITHIUM [Concomitant]

REACTIONS (8)
  - DECREASED APPETITE [None]
  - DEPRESSION [None]
  - FALL [None]
  - INJECTION SITE RASH [None]
  - NAUSEA [None]
  - PRURITUS [None]
  - TREMOR [None]
  - WEIGHT DECREASED [None]
